FAERS Safety Report 9416380 (Version 1)
Quarter: 2013Q3

REPORT INFORMATION
  Report Type: Spontaneous
  Country: US (occurrence: US)
  Receive Date: 20130724
  Receipt Date: 20130724
  Transmission Date: 20140515
  Serious: No
  Sender: FDA-Public Use
  Company Number: US-PFIZER INC-2013212967

PATIENT
  Age: 76 Year
  Sex: Female
  Weight: 63.49 kg

DRUGS (4)
  1. TOVIAZ [Suspect]
     Indication: BLADDER DISORDER
     Dosage: 8 MG, 1X/DAY
     Dates: start: 2010
  2. TOVIAZ [Suspect]
     Dosage: 8 MG, ALTERNATE DAY
  3. TOVIAZ [Suspect]
     Dosage: 8 MG, 1X/DAY
  4. DILTIAZEM [Concomitant]
     Indication: BLOOD PRESSURE ABNORMAL
     Dosage: 180 MG, 1X/DAY

REACTIONS (5)
  - Intentional drug misuse [Unknown]
  - Cystitis [Unknown]
  - Blood urine present [Unknown]
  - Abdominal pain lower [Unknown]
  - Hepatic enzyme decreased [Unknown]
